FAERS Safety Report 8339302 (Version 2)
Quarter: 2013Q2

REPORT INFORMATION
  Report Type: Spontaneous
  Country: US (occurrence: US)
  Receive Date: 20120117
  Receipt Date: 20130429
  Transmission Date: 20140414
  Serious: Yes (Hospitalization, Other)
  Sender: FDA-Public Use
  Company Number: US-ROCHE-1029923

PATIENT
  Sex: Male
  Weight: 93.07 kg

DRUGS (1)
  1. ACCUTANE [Suspect]
     Indication: ACNE
     Route: 065
     Dates: start: 1984, end: 1986

REACTIONS (10)
  - Necrotising fasciitis [Unknown]
  - Colitis ulcerative [Unknown]
  - Crohn^s disease [Unknown]
  - Inflammatory bowel disease [Unknown]
  - Depression [Unknown]
  - Injury [Unknown]
  - Intestinal haemorrhage [Unknown]
  - Anal fistula [Unknown]
  - Anal abscess [Unknown]
  - Irritable bowel syndrome [Unknown]
